FAERS Safety Report 19049737 (Version 3)
Quarter: 2021Q2

REPORT INFORMATION
  Report Type: Spontaneous
  Country: SE (occurrence: SE)
  Receive Date: 20210323
  Receipt Date: 20210414
  Transmission Date: 20210717
  Serious: Yes (Life-Threatening, Other)
  Sender: FDA-Public Use
  Company Number: SE-GILEAD-2021-0522376

PATIENT
  Age: 67 Year
  Sex: Female

DRUGS (18)
  1. VEKLURY [Suspect]
     Active Substance: REMDESIVIR
     Dosage: 200 MG
     Route: 065
     Dates: start: 20210304, end: 20210304
  2. ATORVASTATIN [Concomitant]
     Active Substance: ATORVASTATIN
     Dosage: 40 MG, QD
     Dates: start: 20170718
  3. TRADIL [Concomitant]
     Active Substance: DEXIBUPROFEN
     Dosage: 400 MG 1 TABLETT X 1?3 V B
     Dates: start: 20200324
  4. SERTRALINE [SERTRALINE HYDROCHLORIDE] [Concomitant]
     Active Substance: SERTRALINE HYDROCHLORIDE
     Dosage: 200 MG, QD
     Dates: start: 20170717
  5. KALEORID [Concomitant]
     Active Substance: POTASSIUM CHLORIDE
  6. LOMUDAL [Concomitant]
     Dosage: UNK
     Dates: start: 20170717
  7. NIFEREX [FERROUS GLYCINE SULFATE] [Concomitant]
     Dosage: 100 MG, QD
     Dates: start: 20200528
  8. RINEXIN [Concomitant]
     Active Substance: PHENYLPROPANOLAMINE
     Dosage: 100 MG, QD
     Dates: start: 20180102
  9. FURIX [FUROSEMIDE] [Concomitant]
     Active Substance: FUROSEMIDE
     Dosage: 1?4 TABL X 1?2 VB
     Dates: start: 20170718
  10. VISCOTEARS [Concomitant]
     Active Substance: CARBOMER
     Dosage: 1 DROPPE X 1?4 V B
     Dates: start: 20170717
  11. VEKLURY [Suspect]
     Active Substance: REMDESIVIR
     Indication: COVID-19
     Dosage: 100 MG, QD
     Route: 065
     Dates: start: 20210305, end: 20210307
  12. VAGIFEM [Concomitant]
     Active Substance: ESTRADIOL
     Dosage: UNK
     Dates: start: 20170717
  13. SINGULAIR [Concomitant]
     Active Substance: MONTELUKAST SODIUM
     Dosage: 200 MG, QD
     Dates: start: 20170717
  14. NOVORAPID [Concomitant]
     Active Substance: INSULIN ASPART
     Dosage: UNK
     Dates: start: 20210305
  15. BRICANYL [Concomitant]
     Active Substance: TERBUTALINE SULFATE
     Dosage: 1?2 INHALATIONER VB MAX 10/D
     Dates: start: 20170717
  16. OMEPRAZOLE [OMEPRAZOLE SODIUM] [Concomitant]
     Active Substance: OMEPRAZOLE SODIUM
     Dosage: 20 MG, QD
     Dates: start: 20190430
  17. MOMETASON [Concomitant]
     Active Substance: MOMETASONE FUROATE
     Dosage: 1?2 DOSER X 1?2 V B
     Dates: start: 20170717
  18. MATRIFEN [Concomitant]
     Active Substance: FENTANYL

REACTIONS (2)
  - Bradycardia [Not Recovered/Not Resolved]
  - Cardiac arrest [Not Recovered/Not Resolved]

NARRATIVE: CASE EVENT DATE: 20210305
